FAERS Safety Report 5680021-1 (Version None)
Quarter: 2008Q1

REPORT INFORMATION
  Report Type: 
  Country: None (occurrence: None)
  Receive Date: 20080325
  Receipt Date: 20080325
  Transmission Date: 20080703
  Serious: No
  Sender: FDA-Public Use
  Company Number: None

PATIENT
  Age: 39 Year
  Sex: Female
  Weight: 74.8435 kg

DRUGS (1)
  1. CHANTIX [Suspect]
     Indication: NICOTINE DEPENDENCE
     Dosage: 1 MG BI DPO
     Route: 048
     Dates: start: 20071210, end: 20080314

REACTIONS (9)
  - AFFECT LABILITY [None]
  - AGGRESSION [None]
  - ANGER [None]
  - ANXIETY [None]
  - CRYING [None]
  - DEPRESSION [None]
  - MEMORY IMPAIRMENT [None]
  - MOOD SWINGS [None]
  - NICOTINE DEPENDENCE [None]
